FAERS Safety Report 15102991 (Version 3)
Quarter: 2018Q4

REPORT INFORMATION
  Report Type: Report from Study
  Country: AR (occurrence: AR)
  Receive Date: 20180703
  Receipt Date: 20181017
  Transmission Date: 20190204
  Serious: Yes (Hospitalization, Other)
  Sender: FDA-Public Use
  Company Number: PHHY2018AR040853

PATIENT
  Age: 85 Year
  Sex: Male

DRUGS (2)
  1. TAFINLAR [Suspect]
     Active Substance: DABRAFENIB MESYLATE
     Indication: METASTATIC MALIGNANT MELANOMA
     Dosage: 300 MG, QD
     Route: 065
     Dates: start: 20180223, end: 201808
  2. MEKINIST [Suspect]
     Active Substance: TRAMETINIB DIMETHYL SULFOXIDE
     Indication: METASTATIC MALIGNANT MELANOMA
     Dosage: 2 MG, QD
     Route: 065
     Dates: start: 20180314, end: 201808

REACTIONS (11)
  - Drug intolerance [Recovering/Resolving]
  - Renal impairment [Not Recovered/Not Resolved]
  - Arrhythmia [Unknown]
  - Pyrexia [Recovering/Resolving]
  - Pyrexia [Recovered/Resolved]
  - Blood creatinine increased [Recovering/Resolving]
  - Dehydration [Recovering/Resolving]
  - Urinary tract infection [Unknown]
  - Anaemia [Unknown]
  - Skin papilloma [Not Recovered/Not Resolved]
  - Sinusitis [Recovered/Resolved]

NARRATIVE: CASE EVENT DATE: 201808
